FAERS Safety Report 9349913 (Version 1)
Quarter: 2013Q2

REPORT INFORMATION
  Report Type: Spontaneous
  Country: AU (occurrence: AU)
  Receive Date: 20130614
  Receipt Date: 20130614
  Transmission Date: 20140414
  Serious: Yes (Hospitalization, Other)
  Sender: FDA-Public Use
  Company Number: PHHY2013AU059754

PATIENT
  Age: 78 Year
  Sex: Female

DRUGS (2)
  1. WARFARIN [Suspect]
  2. AZATHIOPRINE [Interacting]
     Indication: SYSTEMIC LUPUS ERYTHEMATOSUS

REACTIONS (7)
  - Dermatitis exfoliative [Recovered/Resolved]
  - Rash maculo-papular [Recovered/Resolved]
  - International normalised ratio increased [Recovered/Resolved]
  - Lichenoid keratosis [Recovered/Resolved]
  - Rash erythematous [Recovered/Resolved]
  - Malaise [Recovered/Resolved]
  - Eosinophilia [Recovered/Resolved]
